FAERS Safety Report 5016929-X (Version None)
Quarter: 2006Q2

REPORT INFORMATION
  Report Type: 
  Country: None (occurrence: None)
  Receive Date: 20060526
  Receipt Date: 20060511
  Transmission Date: 20061013
  Serious: Yes (Death)
  Sender: FDA-Public Use
  Company Number: 047

PATIENT
  Sex: Female

DRUGS (3)
  1. FAZACLO ODT [Suspect]
     Indication: SCHIZOPHRENIA
     Dosage: 75 MG PO DAILY
     Route: 048
     Dates: start: 20041001, end: 20060405
  2. ZOLOFT [Concomitant]
  3. BENADRYL [Concomitant]

REACTIONS (1)
  - LEUKAEMIA [None]
